FAERS Safety Report 5389695-6 (Version None)
Quarter: 2007Q3

REPORT INFORMATION
  Report Type: 
  Country: None (occurrence: None)
  Receive Date: 20070717
  Receipt Date: 20070706
  Transmission Date: 20080115
  Serious: Yes (Death, Hospitalization)
  Sender: FDA-Public Use
  Company Number: JP-ELI_LILLY_AND_COMPANY-JP200705005640

PATIENT
  Age: 63 Year
  Sex: Male
  Weight: 53.9 kg

DRUGS (10)
  1. DULOXETINE HYDROCHLORIDE [Suspect]
     Indication: DIABETIC NEUROPATHY
     Dosage: 20 MG, DAILY (1/D)
     Route: 048
     Dates: start: 20061202, end: 20061208
  2. DULOXETINE HYDROCHLORIDE [Suspect]
     Dosage: 40 MG, DAILY (1/D)
     Route: 048
     Dates: start: 20061209, end: 20061215
  3. DULOXETINE HYDROCHLORIDE [Suspect]
     Dosage: 60 MG, DAILY (1/D)
     Route: 048
     Dates: start: 20061216, end: 20070101
  4. NOVORAPID [Concomitant]
     Indication: TYPE 2 DIABETES MELLITUS
     Dosage: 36 IU, DAILY (1/D)
     Route: 058
  5. ISOSORBIDE MONONITRATE [Concomitant]
     Indication: ANGINA PECTORIS
     Dosage: 40 MG, DAILY (1/D)
     Route: 048
     Dates: start: 20061012
  6. PURSENNID [Concomitant]
     Indication: CONSTIPATION
     Dosage: 24 MG, DAILY (1/D)
     Route: 048
     Dates: start: 20060817
  7. LASIX [Concomitant]
     Indication: DIABETIC NEPHROPATHY
     Dosage: 40 MG, DAILY (1/D)
     Route: 048
     Dates: start: 20060817
  8. TICLOPIDINE HCL [Concomitant]
     Indication: ANGINA PECTORIS
     Dosage: 200 MG, DAILY (1/D)
     Route: 048
     Dates: start: 20061012
  9. ASPIRIN [Concomitant]
     Indication: ISCHAEMIC HEART DISEASE PROPHYLAXIS
     Dosage: 200 MG, DAILY (1/D)
     Route: 048
  10. OMEPRAZOLE [Concomitant]
     Indication: GASTROENTERITIS
     Dosage: 20 MG, DAILY (1/D)
     Route: 048
     Dates: start: 20061012

REACTIONS (1)
  - BRAIN STEM HAEMORRHAGE [None]
